FAERS Safety Report 25622639 (Version 1)
Quarter: 2025Q3

REPORT INFORMATION
  Report Type: Spontaneous
  Country: US (occurrence: US)
  Receive Date: 20250730
  Receipt Date: 20250730
  Transmission Date: 20251021
  Serious: Yes (Other)
  Sender: AMGEN
  Company Number: US-AMGEN-USASP2025146727

PATIENT
  Age: 18 Year
  Sex: Male

DRUGS (7)
  1. PREDNISONE [Suspect]
     Active Substance: PREDNISONE
     Indication: Retinal degeneration
     Dosage: 1 MILLIGRAM, QD
     Route: 048
  2. ADALIMUMAB [Suspect]
     Active Substance: ADALIMUMAB
     Indication: Retinal degeneration
     Dosage: 40 MILLIGRAM, Q2WK
     Route: 058
  3. RITUXIMAB [Suspect]
     Active Substance: RITUXIMAB
     Indication: Retinal degeneration
     Dosage: 375 MILLIGRAM/SQ. METER, QWK (A LOADING DOSE WEEKLY FOR 4 WEEKS)
     Route: 065
  4. RITUXIMAB [Suspect]
     Active Substance: RITUXIMAB
     Dosage: 375 MILLIGRAM/SQ. METER, Q4MO
     Route: 065
  5. Immunoglobulin [Concomitant]
     Dosage: 2 GRAM PER KILOGRAM, QMO
     Route: 040
  6. METHYLPREDNISOLONE [Concomitant]
     Active Substance: METHYLPREDNISOLONE
     Dosage: 750 MILLIGRAM, QD FOR 3 DAYS EACH MONTH
     Route: 040
  7. MYCOPHENOLATE MOFETIL [Concomitant]
     Active Substance: MYCOPHENOLATE MOFETIL
     Dosage: 2500 MILLIGRAM, QD
     Route: 048

REACTIONS (3)
  - Oral herpes [Unknown]
  - Immunosuppression [Unknown]
  - Off label use [Unknown]
